FAERS Safety Report 18202168 (Version 3)
Quarter: 2020Q4

REPORT INFORMATION
  Report Type: Spontaneous
  Country: US (occurrence: US)
  Receive Date: 20200827
  Receipt Date: 20201218
  Transmission Date: 20210113
  Serious: No
  Sender: FDA-Public Use
  Company Number: US-PFIZER INC-2020330787

PATIENT
  Age: 48 Year
  Sex: Female

DRUGS (1)
  1. LYRICA [Suspect]
     Active Substance: PREGABALIN
     Dosage: UNK

REACTIONS (6)
  - Poor quality product administered [Unknown]
  - Poor quality sleep [Unknown]
  - Product storage error [Unknown]
  - Hypersomnia [Unknown]
  - Pain [Unknown]
  - Asthenia [Unknown]
